FAERS Safety Report 9720599 (Version 1)
Quarter: 2013Q4

REPORT INFORMATION
  Report Type: Report from Study
  Country: DE (occurrence: DE)
  Receive Date: 20131129
  Receipt Date: 20131129
  Transmission Date: 20140711
  Serious: Yes (Hospitalization)
  Sender: FDA-Public Use
  Company Number: DE-ROCHE-1307892

PATIENT
  Age: 55 Year
  Sex: Female

DRUGS (3)
  1. PEG-INTERFERON ALFA 2A [Suspect]
     Indication: CHRONIC HEPATITIS C
     Route: 065
     Dates: start: 201107, end: 20120602
  2. RIBAVIRIN [Suspect]
     Indication: CHRONIC HEPATITIS C
     Route: 065
     Dates: start: 201107
  3. BOCEPREVIR [Suspect]
     Indication: CHRONIC HEPATITIS C
     Route: 065
     Dates: start: 201107

REACTIONS (8)
  - Peritonitis bacterial [Unknown]
  - Sepsis [Unknown]
  - Pneumonia [Unknown]
  - Renal failure [Recovered/Resolved]
  - Compartment syndrome [Unknown]
  - Atrial fibrillation [Unknown]
  - Hepatic cirrhosis [Unknown]
  - Thrombocytopenia [Recovering/Resolving]
